FAERS Safety Report 7956523-1 (Version None)
Quarter: 2011Q4

REPORT INFORMATION
  Report Type: 
  Country: None (occurrence: None)
  Receive Date: 20111205
  Receipt Date: 20111123
  Transmission Date: 20120403
  Serious: Yes (Other)
  Sender: FDA-Public Use
  Company Number: US-SANOFI-AVENTIS-2011SA077874

PATIENT
  Age: 71 Year
  Sex: Female

DRUGS (6)
  1. ALLEGRA [Suspect]
     Route: 048
     Dates: start: 20110301
  2. FEXOFENADINE HYDROCHLORIDE [Suspect]
  3. ALLEGRA [Suspect]
  4. ALLEGRA [Suspect]
     Route: 048
  5. DIPHENHYDRAMINE HCL [Suspect]
     Dates: start: 20110101
  6. HYDROCHLOROTHIAZIDE [Concomitant]
     Dates: end: 20110901

REACTIONS (10)
  - DYSARTHRIA [None]
  - URTICARIA [None]
  - FATIGUE [None]
  - PRURITUS [None]
  - ANGIOEDEMA [None]
  - OVERDOSE [None]
  - TRANSIENT ISCHAEMIC ATTACK [None]
  - RASH [None]
  - INSOMNIA [None]
  - HYPOAESTHESIA [None]
